FAERS Safety Report 7933152-7 (Version None)
Quarter: 2011Q4

REPORT INFORMATION
  Report Type: 
  Country: None (occurrence: None)
  Receive Date: 20111121
  Receipt Date: 20111121
  Transmission Date: 20120403
  Serious: No
  Sender: FDA-Public Use
  Company Number: None

PATIENT
  Sex: Male

DRUGS (1)
  1. TIKOSYN 250MG PFIZER [Suspect]
     Dosage: 250MCG BID ORAL
     Route: 048
     Dates: start: 20110928, end: 20111116

REACTIONS (1)
  - RASH GENERALISED [None]
